FAERS Safety Report 21197219 (Version 2)
Quarter: 2022Q3

REPORT INFORMATION
  Report Type: Other
  Country: US (occurrence: None)
  Receive Date: 20220810
  Receipt Date: 20220811
  Transmission Date: 20221026
  Serious: No
  Sender: FDA-Public Use
  Company Number: US-ROCHE-3156218

PATIENT
  Age: 62 Year
  Sex: Female
  Weight: 68.100 kg

DRUGS (6)
  1. OCREVUS [Suspect]
     Active Substance: OCRELIZUMAB
     Indication: Relapsing-remitting multiple sclerosis
     Dosage: ONGOING YES, (STRENGTH: 30 MG/ML VIALS), INFUSE 600MG INTRAVENOUSLY EVERY 180 DAY(S)
     Route: 042
     Dates: start: 20210609
  2. BACLOFEN [Concomitant]
     Active Substance: BACLOFEN
  3. ERGOCALCIFEROL [Concomitant]
     Active Substance: ERGOCALCIFEROL
  4. LEVOTHYROXINE SODIUM [Concomitant]
     Active Substance: LEVOTHYROXINE SODIUM
  5. BIOTIN [Concomitant]
     Active Substance: BIOTIN
  6. CALCIUM [Concomitant]
     Active Substance: CALCIUM

REACTIONS (1)
  - Hepatitis B antibody abnormal [Not Recovered/Not Resolved]

NARRATIVE: CASE EVENT DATE: 20220501
